FAERS Safety Report 20215112 (Version 2)
Quarter: 2022Q1

REPORT INFORMATION
  Report Type: Report from Study
  Country: CA (occurrence: CA)
  Receive Date: 20211222
  Receipt Date: 20220125
  Transmission Date: 20220423
  Serious: Yes (Other)
  Sender: FDA-Public Use
  Company Number: CA-JNJFOC-20211238415

PATIENT
  Age: 62 Year
  Sex: Female
  Weight: 119 kg

DRUGS (1)
  1. REMICADE [Suspect]
     Active Substance: INFLIXIMAB
     Indication: Rheumatoid arthritis
     Dosage: ADDITIONAL EXPIRY DATE: JUL-2024
     Route: 042

REACTIONS (4)
  - Sense of oppression [Unknown]
  - Dysphonia [Unknown]
  - Back pain [Not Recovered/Not Resolved]
  - Infusion related reaction [Recovered/Resolved]

NARRATIVE: CASE EVENT DATE: 20211215
